FAERS Safety Report 8011521-7 (Version None)
Quarter: 2011Q4

REPORT INFORMATION
  Report Type: 
  Country: None (occurrence: None)
  Receive Date: 20111228
  Receipt Date: 20111222
  Transmission Date: 20120403
  Serious: No
  Sender: FDA-Public Use
  Company Number: US-PFIZER INC-2011312648

PATIENT
  Sex: Female
  Weight: 63 kg

DRUGS (6)
  1. PRISTIQ [Suspect]
     Indication: ANXIETY
     Dosage: 50 MG, DAILY
     Dates: start: 20111221, end: 20111222
  2. WELLBUTRIN [Concomitant]
     Indication: ANXIETY
     Dosage: 200 MG, DAILY
  3. WELLBUTRIN [Concomitant]
     Indication: DEPRESSION
  4. WELLBUTRIN [Concomitant]
     Indication: OBSESSIVE-COMPULSIVE DISORDER
  5. PRISTIQ [Suspect]
     Indication: DEPRESSION
  6. PRISTIQ [Suspect]
     Indication: OBSESSIVE-COMPULSIVE DISORDER

REACTIONS (4)
  - NAUSEA [None]
  - FEELING ABNORMAL [None]
  - FATIGUE [None]
  - MUSCLE SPASMS [None]
